FAERS Safety Report 6030780-3 (Version None)
Quarter: 2009Q1

REPORT INFORMATION
  Report Type: 
  Country: None (occurrence: None)
  Receive Date: 20090107
  Receipt Date: 20090105
  Transmission Date: 20090719
  Serious: Yes (Other)
  Sender: FDA-Public Use
  Company Number: PHHY2009JP00559

PATIENT

DRUGS (1)
  1. ZOMETA [Suspect]
     Indication: METASTASES TO BONE
     Dosage: UNK
     Route: 042
     Dates: start: 20070101, end: 20080701

REACTIONS (2)
  - OSTEOMYELITIS [None]
  - PURULENT DISCHARGE [None]
